FAERS Safety Report 9482410 (Version 4)
Quarter: 2013Q4

REPORT INFORMATION
  Report Type: Spontaneous
  Country: FI (occurrence: FI)
  Receive Date: 20130828
  Receipt Date: 20131011
  Transmission Date: 20140711
  Serious: Yes (Other)
  Sender: FDA-Public Use
  Company Number: FI-PFIZER INC-2013243052

PATIENT
  Sex: 0

DRUGS (2)
  1. SUTENT [Suspect]
     Indication: ACUTE MYELOID LEUKAEMIA
     Dosage: 50 MG, 1X/DAY
     Route: 048
     Dates: start: 20130709, end: 20130805
  2. VESANOID [Suspect]
     Indication: ACUTE MYELOID LEUKAEMIA
     Dosage: 40 MG, 2X/DAY
     Dates: start: 20130702, end: 20130805

REACTIONS (3)
  - Off label use [Not Recovered/Not Resolved]
  - Erythropoiesis abnormal [Not Recovered/Not Resolved]
  - Cardiac disorder [Unknown]
